FAERS Safety Report 9435309 (Version 1)
Quarter: 2013Q3

REPORT INFORMATION
  Report Type: Spontaneous
  Country: AT (occurrence: AT)
  Receive Date: 20130801
  Receipt Date: 20130801
  Transmission Date: 20140515
  Serious: Yes (Other)
  Sender: FDA-Public Use
  Company Number: AT-JNJFOC-20130716144

PATIENT
  Age: 56 Year
  Sex: Female
  Weight: 60 kg

DRUGS (6)
  1. XARELTO [Suspect]
     Indication: THROMBOSIS PROPHYLAXIS
     Route: 048
     Dates: start: 20130418, end: 20130504
  2. XARELTO [Suspect]
     Indication: PULMONARY EMBOLISM
     Route: 048
     Dates: start: 20130418, end: 20130504
  3. GLIVEC [Concomitant]
     Indication: CHRONIC MYELOID LEUKAEMIA
     Route: 048
     Dates: start: 20110505
  4. ROVACOR [Concomitant]
     Indication: HYPERTENSION
     Route: 048
  5. MAXI-KALZ VIT D3 [Concomitant]
     Indication: OSTEOPENIA
     Dosage: 1-2/DAY
     Route: 048
     Dates: start: 201301
  6. MAXI-KALZ VIT D3 [Concomitant]
     Indication: OSTEOPOROSIS
     Dosage: 1-2/DAY
     Route: 048
     Dates: start: 201301

REACTIONS (5)
  - Joint swelling [Recovered/Resolved]
  - Arthralgia [Recovered/Resolved]
  - Joint swelling [Recovered/Resolved]
  - Arthralgia [Recovered/Resolved]
  - Joint range of motion decreased [Recovered/Resolved]
